FAERS Safety Report 5828438-6 (Version None)
Quarter: 2008Q3

REPORT INFORMATION
  Report Type: 
  Country: None (occurrence: None)
  Receive Date: 20080729
  Receipt Date: 20080715
  Transmission Date: 20090109
  Serious: Yes (Death, Hospitalization)
  Sender: FDA-Public Use
  Company Number: 2008001500

PATIENT
  Age: 51 Year
  Sex: Male

DRUGS (5)
  1. ERLOTINIB         (ERLOTINIB) [Suspect]
     Indication: NON-SMALL CELL LUNG CANCER
     Dosage: (150 MT, QD), ORAL
     Route: 048
     Dates: start: 20080329, end: 20080418
  2. PANTOPRAZOLE SODIUM [Concomitant]
  3. ASPIRIN [Concomitant]
  4. SIMVASTATIN [Concomitant]
  5. JODETTEN [Concomitant]

REACTIONS (1)
  - DEEP VEIN THROMBOSIS [None]
